FAERS Safety Report 4744177-7 (Version None)
Quarter: 2005Q3

REPORT INFORMATION
  Report Type: 
  Country: None (occurrence: None)
  Receive Date: 20050810
  Receipt Date: 20050810
  Transmission Date: 20060218
  Serious: No
  Sender: FDA-Public Use
  Company Number: None

PATIENT
  Age: 61 Year
  Sex: Female
  Weight: 78.4723 kg

DRUGS (2)
  1. TRAMADOL HCL [Suspect]
     Indication: FIBROMYALGIA
     Dosage: 50 MG ORAL
     Route: 048
  2. TRAMADOL HCL [Suspect]
     Indication: MYALGIA
     Dosage: 50 MG ORAL
     Route: 048

REACTIONS (3)
  - FEELING HOT [None]
  - NEURALGIA [None]
  - TREMOR [None]
